FAERS Safety Report 5773733-2 (Version None)
Quarter: 2008Q2

REPORT INFORMATION
  Report Type: 
  Country: None (occurrence: None)
  Receive Date: 20080601
  Receipt Date: 20080225
  Transmission Date: 20081010
  Serious: No
  Sender: FDA-Public Use
  Company Number: US200802005846

PATIENT
  Age: 52 Year
  Sex: Female
  Weight: 113.4 kg

DRUGS (11)
  1. BYETTA [Suspect]
     Indication: TYPE 2 DIABETES MELLITUS
     Dosage: 5 UG, 2/D, SUBCUTANEOUS ; 10 UG, 2/D, SUBCUTANEOUS
     Route: 058
     Dates: start: 20071101, end: 20071201
  2. BYETTA [Suspect]
     Indication: TYPE 2 DIABETES MELLITUS
     Dosage: 5 UG, 2/D, SUBCUTANEOUS ; 10 UG, 2/D, SUBCUTANEOUS
     Route: 058
     Dates: start: 20071201, end: 20080220
  3. GLUCOPHAGE /USA/ (METFORMIN HYDROCHLORIDE) [Concomitant]
  4. BENTYL [Concomitant]
  5. PREVACID [Concomitant]
  6. DYAZIDE [Concomitant]
  7. ZETIA [Concomitant]
  8. ENALAPRIL MALEATE [Concomitant]
  9. ZYRTEC [Concomitant]
  10. MULTIVITAMIN [Concomitant]
  11. ASPIRIN /USA/ (ACETYLSALICYLIC ACID) [Concomitant]

REACTIONS (4)
  - DEPRESSED MOOD [None]
  - DIZZINESS [None]
  - HEADACHE [None]
  - LETHARGY [None]
